FAERS Safety Report 19077425 (Version 1)
Quarter: 2021Q1

REPORT INFORMATION
  Report Type: Spontaneous
  Country: US (occurrence: US)
  Receive Date: 20210331
  Receipt Date: 20210331
  Transmission Date: 20210420
  Serious: Yes (Other)
  Sender: FDA-Public Use
  Company Number: US-GLAXOSMITHKLINE-US2021GSK069850

PATIENT
  Sex: Female

DRUGS (31)
  1. RANITIDINE. [Suspect]
     Active Substance: RANITIDINE
     Indication: DYSPEPSIA
     Dosage: 150 MG, OCCASIONAL
     Route: 065
     Dates: start: 200401, end: 201809
  2. RANITIDINE. [Suspect]
     Active Substance: RANITIDINE
     Indication: ABDOMINAL DISCOMFORT
     Dosage: UNKNOWN AT THIS TIME, OCCASIONAL
     Route: 065
     Dates: start: 200401, end: 201809
  3. RANITIDINE. [Suspect]
     Active Substance: RANITIDINE
     Indication: ABDOMINAL DISCOMFORT
     Dosage: UNKNOWN AT THIS TIME, OCCASIONAL
     Route: 065
     Dates: start: 200401, end: 201809
  4. RANITIDINE HYDROCHLORIDE. [Suspect]
     Active Substance: RANITIDINE HYDROCHLORIDE
     Indication: DYSPEPSIA
     Dosage: UNKNOWN AT THIS TIME, OCCASIONAL
     Route: 065
     Dates: start: 200401, end: 201809
  5. RANITIDINE CAPSULE [Suspect]
     Active Substance: RANITIDINE
     Indication: DYSPEPSIA
     Dosage: 75 MG, OCCASIONAL
     Route: 065
     Dates: start: 200401, end: 201809
  6. RANITIDINE HYDROCHLORIDE. [Suspect]
     Active Substance: RANITIDINE HYDROCHLORIDE
     Indication: ABDOMINAL DISCOMFORT
  7. ZANTAC [Suspect]
     Active Substance: RANITIDINE HYDROCHLORIDE
     Indication: GASTROOESOPHAGEAL REFLUX DISEASE
     Dosage: 50 MG/ML, OCCASIONAL
     Route: 065
     Dates: start: 200401, end: 201809
  8. ZANTAC [Suspect]
     Active Substance: RANITIDINE HYDROCHLORIDE
     Indication: ABDOMINAL DISCOMFORT
     Dosage: 150 MG, OCCASIONAL
     Route: 065
     Dates: start: 200401, end: 201809
  9. ZANTAC [Suspect]
     Active Substance: RANITIDINE HYDROCHLORIDE
     Indication: ABDOMINAL DISCOMFORT
     Dosage: 150 MG, OCCASIONAL
     Route: 065
     Dates: start: 200401, end: 201809
  10. RANITIDINE. [Suspect]
     Active Substance: RANITIDINE
     Indication: GASTROOESOPHAGEAL REFLUX DISEASE
     Dosage: 75 MG, OCCASIONAL
     Route: 065
     Dates: start: 200401, end: 201809
  11. RANITIDINE. [Suspect]
     Active Substance: RANITIDINE
     Indication: GASTROOESOPHAGEAL REFLUX DISEASE
     Dosage: 75 MG, OCCASIONAL
     Route: 065
     Dates: start: 200401, end: 201809
  12. RANITIDINE. [Suspect]
     Active Substance: RANITIDINE
     Indication: ABDOMINAL DISCOMFORT
     Dosage: UNKNOWN AT THIS TIME, OCCASIONAL
     Route: 065
     Dates: start: 200401, end: 201809
  13. RANITIDINE HYDROCHLORIDE. [Suspect]
     Active Substance: RANITIDINE HYDROCHLORIDE
     Indication: GASTROOESOPHAGEAL REFLUX DISEASE
     Dosage: 50 MG/ML, OCCASIONAL
     Route: 065
     Dates: start: 200401, end: 201809
  14. ZANTAC [Suspect]
     Active Substance: RANITIDINE HYDROCHLORIDE
     Indication: GASTROOESOPHAGEAL REFLUX DISEASE
     Dosage: 25 MG, OCCASIONAL
     Route: 065
     Dates: start: 200401, end: 201809
  15. ZANTAC [Suspect]
     Active Substance: RANITIDINE HYDROCHLORIDE
     Dosage: UNKNOWN AT THIS TIME, OCCASIONAL
     Route: 065
     Dates: start: 200401, end: 201809
  16. ZANTAC [Suspect]
     Active Substance: RANITIDINE HYDROCHLORIDE
     Indication: DYSPEPSIA
     Dosage: 75 MG, OCCASIONAL
     Route: 065
     Dates: start: 200401, end: 201809
  17. ZANTAC [Suspect]
     Active Substance: RANITIDINE HYDROCHLORIDE
     Indication: DYSPEPSIA
     Dosage: 75 MG, OCCASIONAL
     Route: 065
     Dates: start: 200401, end: 201809
  18. RANITIDINE. [Suspect]
     Active Substance: RANITIDINE
     Indication: GASTROOESOPHAGEAL REFLUX DISEASE
     Dosage: 75 MG, OCCASIONAL
     Route: 065
     Dates: start: 200401, end: 201809
  19. ZANTAC [Suspect]
     Active Substance: RANITIDINE HYDROCHLORIDE
     Indication: DYSPEPSIA
     Dosage: UNKNOWN AT THIS TIME, OCCASIONAL
     Route: 065
     Dates: start: 200401, end: 201809
  20. ZANTAC [Suspect]
     Active Substance: RANITIDINE HYDROCHLORIDE
     Indication: ABDOMINAL DISCOMFORT
     Dosage: 150 MG, OCCASIONAL
     Route: 065
     Dates: start: 200401, end: 201809
  21. RANITIDINE CAPSULE [Suspect]
     Active Substance: RANITIDINE
     Indication: GASTROOESOPHAGEAL REFLUX DISEASE
     Dosage: 25 MG, OCCASIONAL
     Route: 065
     Dates: start: 200401, end: 201809
  22. ZANTAC [Suspect]
     Active Substance: RANITIDINE HYDROCHLORIDE
     Dosage: UNKNOWN AT THIS TIME, OCCASIONAL
     Route: 065
     Dates: start: 200401, end: 201809
  23. ZANTAC [Suspect]
     Active Substance: RANITIDINE HYDROCHLORIDE
     Dosage: UNKNOWN AT THIS TIME, OCCASIONAL
     Route: 065
     Dates: start: 200401, end: 201809
  24. RANITIDINE CAPSULE [Suspect]
     Active Substance: RANITIDINE
     Indication: ABDOMINAL DISCOMFORT
     Dosage: 150 MG, OCCASIONAL
     Route: 065
     Dates: start: 200401, end: 201809
  25. RANITIDINE CAPSULE [Suspect]
     Active Substance: RANITIDINE
     Dosage: UNKNOWN AT THIS TIME, OCCASIONAL
     Route: 065
     Dates: start: 200401, end: 201809
  26. RANITIDINE. [Suspect]
     Active Substance: RANITIDINE
     Indication: DYSPEPSIA
     Dosage: 150 MG, OCCASIONAL
     Route: 065
     Dates: start: 200401, end: 201809
  27. RANITIDINE. [Suspect]
     Active Substance: RANITIDINE
     Indication: DYSPEPSIA
     Dosage: 150 MG, OCCASIONAL
     Route: 065
     Dates: start: 200401, end: 201809
  28. ZANTAC [Suspect]
     Active Substance: RANITIDINE HYDROCHLORIDE
     Indication: ABDOMINAL DISCOMFORT
  29. ZANTAC [Suspect]
     Active Substance: RANITIDINE HYDROCHLORIDE
     Indication: DYSPEPSIA
     Dosage: 75 MG, OCCASIONAL
     Route: 065
     Dates: start: 200401, end: 201809
  30. ZANTAC [Suspect]
     Active Substance: RANITIDINE HYDROCHLORIDE
     Indication: GASTROOESOPHAGEAL REFLUX DISEASE
     Dosage: 25 MG, OCCASIONAL
     Route: 065
     Dates: start: 200401, end: 201809
  31. ZANTAC [Suspect]
     Active Substance: RANITIDINE HYDROCHLORIDE
     Indication: GASTROOESOPHAGEAL REFLUX DISEASE
     Dosage: 25 MG, OCCASIONAL
     Route: 065
     Dates: start: 200401, end: 201809

REACTIONS (1)
  - Renal cancer [Unknown]
